FAERS Safety Report 16836568 (Version 1)
Quarter: 2019Q3

REPORT INFORMATION
  Report Type: Spontaneous
  Country: US (occurrence: US)
  Receive Date: 20190921
  Receipt Date: 20190921
  Transmission Date: 20191005
  Serious: No
  Sender: FDA-Public Use
  Company Number: US-009507513-1909USA004683

PATIENT
  Sex: Female
  Weight: 69.39 kg

DRUGS (2)
  1. NEXPLANON [Suspect]
     Active Substance: ETONOGESTREL
     Dosage: 1 DOSAGE FORM (LEFT ARM)
     Route: 059
     Dates: end: 20190911
  2. NEXPLANON [Suspect]
     Active Substance: ETONOGESTREL
     Indication: CONTRACEPTION
     Dosage: 1 DOSAGE FORM (LEFT ARM)
     Route: 059
     Dates: start: 2017, end: 20190911

REACTIONS (4)
  - Menstruation irregular [Recovering/Resolving]
  - Implant site scar [Unknown]
  - Overdose [Recovered/Resolved]
  - Fatigue [Recovering/Resolving]
